FAERS Safety Report 12099034 (Version 1)
Quarter: 2016Q1

REPORT INFORMATION
  Report Type: Spontaneous
  Country: FR (occurrence: FR)
  Receive Date: 20160222
  Receipt Date: 20160222
  Transmission Date: 20160526
  Serious: Yes (Other)
  Sender: FDA-Public Use
  Company Number: FR-ROCHE-1714461

PATIENT
  Age: 40 Year
  Sex: Male

DRUGS (5)
  1. ZOSTRIX ORIGINAL STRENGTH [Suspect]
     Active Substance: CAPSAICIN
     Route: 061
  2. ZOSTRIX ORIGINAL STRENGTH [Suspect]
     Active Substance: CAPSAICIN
     Indication: NEURALGIA
     Route: 061
     Dates: start: 201601
  3. QUTENZA [Suspect]
     Active Substance: CAPSAICIN
     Indication: NEURALGIA
     Route: 061
     Dates: end: 201601
  4. RIVOTRIL [Suspect]
     Active Substance: CLONAZEPAM
     Indication: NEURALGIA
     Route: 048
  5. RIVOTRIL [Suspect]
     Active Substance: CLONAZEPAM
     Route: 048

REACTIONS (2)
  - Therapeutic response increased [Recovered/Resolved with Sequelae]
  - Pain threshold decreased [Recovered/Resolved with Sequelae]

NARRATIVE: CASE EVENT DATE: 201601
